FAERS Safety Report 7655880-3 (Version None)
Quarter: 2011Q3

REPORT INFORMATION
  Report Type: 
  Country: None (occurrence: None)
  Receive Date: 20110804
  Receipt Date: 20110728
  Transmission Date: 20111222
  Serious: Yes (Hospitalization)
  Sender: FDA-Public Use
  Company Number: BR-MEDIMMUNE-MEDI-0013356

PATIENT
  Sex: Male

DRUGS (5)
  1. SPIRONOLACTONE [Concomitant]
     Indication: PULMONARY HYPERTENSION
     Route: 048
  2. SYNAGIS [Suspect]
     Indication: BRONCHOPULMONARY DYSPLASIA
  3. SYNAGIS [Suspect]
     Route: 030
     Dates: start: 20110401, end: 20110401
  4. FERROUS SULFATE TAB [Concomitant]
     Route: 048
  5. COLECALCIFEROL / VITAMIN A ACETATE [Concomitant]
     Route: 048

REACTIONS (4)
  - PULMONARY HYPERTENSION [None]
  - PYREXIA [None]
  - BRONCHIOLITIS [None]
  - FATIGUE [None]
